FAERS Safety Report 5013937-X (Version None)
Quarter: 2006Q2

REPORT INFORMATION
  Report Type: 
  Country: None (occurrence: None)
  Receive Date: 20060525
  Receipt Date: 20060520
  Transmission Date: 20061013
  Serious: Yes (Other)
  Sender: FDA-Public Use
  Company Number: 219643

PATIENT
  Sex: Female

DRUGS (5)
  1. MABTHERA [Suspect]
     Indication: B-CELL LYMPHOMA
  2. CYCLOPHOSPHAMIDE [Suspect]
     Indication: B-CELL LYMPHOMA
  3. DOXORUBICIN HCL [Suspect]
     Indication: B-CELL LYMPHOMA
  4. VINCRISTINE [Suspect]
     Indication: B-CELL LYMPHOMA
  5. PREDNISONE TAB [Suspect]
     Indication: B-CELL LYMPHOMA

REACTIONS (1)
  - GUILLAIN-BARRE SYNDROME [None]
